FAERS Safety Report 13779428 (Version 1)
Quarter: 2017Q3

REPORT INFORMATION
  Report Type: Other
  Country: GB (occurrence: US)
  Receive Date: 20170721
  Receipt Date: 20170721
  Transmission Date: 20171127
  Serious: Yes (Other)
  Sender: FDA-Public Use
  Company Number: US-INTERNATIONAL MEDICATION SYSTEMS, LIMITED-2023614

PATIENT
  Age: 16 Year
  Sex: Male

DRUGS (9)
  1. SALBUTAMOL [Concomitant]
     Active Substance: ALBUTEROL
     Route: 045
  2. MAGNESIUM INFUSION [Concomitant]
  3. AMINOPHYLLINE. [Concomitant]
     Active Substance: AMINOPHYLLINE
  4. EPINEPHRINE. [Suspect]
     Active Substance: EPINEPHRINE
  5. SEVOFLURANE. [Concomitant]
     Active Substance: SEVOFLURANE
     Route: 045
  6. AMINOPHYLLINE. [Concomitant]
     Active Substance: AMINOPHYLLINE
  7. KETAMINE HYDROCHLORIDE. [Concomitant]
     Active Substance: KETAMINE HYDROCHLORIDE
  8. MAGNESIUM INFUSION [Concomitant]
  9. METHYLPREDNISOLONE. [Concomitant]
     Active Substance: METHYLPREDNISOLONE
     Route: 042

REACTIONS (1)
  - Tachycardia [Unknown]
